FAERS Safety Report 15803733 (Version 1)
Quarter: 2019Q1

REPORT INFORMATION
  Report Type: Spontaneous
  Country: IT (occurrence: IT)
  Receive Date: 20190109
  Receipt Date: 20190109
  Transmission Date: 20190417
  Serious: Yes (Other)
  Sender: FDA-Public Use
  Company Number: IT-BRISTOL-MYERS SQUIBB COMPANY-BMS-2019-001112

PATIENT
  Age: 68 Year
  Sex: Male

DRUGS (7)
  1. FOZNOL [Concomitant]
     Indication: HYPERPHOSPHATAEMIA
     Dosage: 1 DF=1T,DRUG INTERVAL DOSAGE UNIT REPORTED AS 1 DAY, UNK
     Route: 048
  2. DELTACORTENE [Concomitant]
     Active Substance: PREDNISONE
     Indication: ARTHRITIS
     Dosage: 1 DF=1T,DRUG INTERVAL DOSAGE UNIT NUMBER REPORTED AS 1 DAY, UNK
     Route: 048
  3. ROCALTROL [Concomitant]
     Active Substance: CALCITRIOL
     Indication: RENAL FAILURE
     Dosage: 1 DF=1T,DRUG INTERVAL DOSAGE UNIT NUMBER WAS REPORTED AS1 DAY, UNK
     Route: 048
  4. IPERTEN [Concomitant]
     Active Substance: MANIDIPINE
     Indication: HYPERTENSION
     Dosage: 1 DF=1T,DRUG INTERVAL DOSAGE UNIT NUMBER REPORTED AS 1 DAY, UNK
     Route: 048
  5. NOBISTAR [Concomitant]
     Active Substance: NEBIVOLOL HYDROCHLORIDE
     Indication: HYPERTENSION
     Dosage: 1 DF=1T,DRUG INTERVAL DOSAGE UNIT NUMBER REPORTED AS 1 DAY, UNK
     Route: 048
  6. COUMADIN [Suspect]
     Active Substance: WARFARIN SODIUM
     Indication: PULMONARY EMBOLISM
     Dosage: 1 DF=1T,DRUG INTERVAL DOSAGE UNIT NUMBER REPORTED AS 1 DAY, UNK
     Route: 048
  7. LANSOPRAZOLE. [Concomitant]
     Active Substance: LANSOPRAZOLE
     Indication: GASTROOESOPHAGEAL REFLUX DISEASE
     Dosage: 1 DF=1T, UNK
     Route: 048

REACTIONS (1)
  - Palpitations [Recovered/Resolved]

NARRATIVE: CASE EVENT DATE: 20190102
